FAERS Safety Report 4706865-8 (Version None)
Quarter: 2005Q3

REPORT INFORMATION
  Report Type: 
  Country: None (occurrence: None)
  Receive Date: 20050706
  Receipt Date: 20050606
  Transmission Date: 20060218
  Serious: Yes (Death)
  Sender: FDA-Public Use
  Company Number: US-MERCK-0506USA01029

PATIENT
  Age: 38 Year
  Sex: Male

DRUGS (2)
  1. VIOXX [Suspect]
     Indication: ARTHRALGIA
     Route: 048
     Dates: end: 20030501
  2. VIOXX [Suspect]
     Route: 048
     Dates: end: 20050501

REACTIONS (1)
  - SUDDEN CARDIAC DEATH [None]
